FAERS Safety Report 14992845 (Version 6)
Quarter: 2018Q3

REPORT INFORMATION
  Report Type: Report from Study
  Country: US (occurrence: US)
  Receive Date: 20180609
  Receipt Date: 20180821
  Transmission Date: 20181010
  Serious: Yes (Other)
  Sender: FDA-Public Use
  Company Number: PHEH2018US021922

PATIENT
  Age: 75 Year
  Sex: Female

DRUGS (4)
  1. AFINITOR [Suspect]
     Active Substance: EVEROLIMUS
     Indication: FALLOPIAN TUBE CANCER
     Dosage: 2.5 MG, QD
     Route: 048
     Dates: start: 20180521
  2. RUCAPARIB [Concomitant]
     Active Substance: RUCAPARIB
     Indication: PRODUCT USED FOR UNKNOWN INDICATION
     Route: 065
  3. AFINITOR [Suspect]
     Active Substance: EVEROLIMUS
     Dosage: 10 MG, QD
     Route: 048
     Dates: start: 20180523, end: 20180620
  4. EXEMESTANE. [Concomitant]
     Active Substance: EXEMESTANE
     Indication: PRODUCT USED FOR UNKNOWN INDICATION
     Route: 065

REACTIONS (11)
  - Thrombocytopenia [Unknown]
  - Fatigue [Unknown]
  - Cough [Unknown]
  - Product use in unapproved indication [Unknown]
  - Constipation [Unknown]
  - Platelet count decreased [Unknown]
  - Fallopian tube cancer [Not Recovered/Not Resolved]
  - Epistaxis [Unknown]
  - Malignant neoplasm progression [Not Recovered/Not Resolved]
  - Diarrhoea [Unknown]
  - White blood cell count increased [Unknown]

NARRATIVE: CASE EVENT DATE: 20180613
